FAERS Safety Report 8525952-X (Version None)
Quarter: 2012Q3

REPORT INFORMATION
  Report Type: 
  Country: None (occurrence: None)
  Receive Date: 20120720
  Receipt Date: 20120710
  Transmission Date: 20120928
  Serious: Yes (Other)
  Sender: FDA-Public Use
  Company Number: DE-FRI-1000036860

PATIENT
  Sex: Female

DRUGS (1)
  1. FOSFOMYCIN [Suspect]
     Indication: CYSTITIS
     Route: 048
     Dates: start: 20120613, end: 20120613

REACTIONS (2)
  - HYPERSENSITIVITY [None]
  - DRUG INEFFECTIVE [None]
